FAERS Safety Report 5397747-X (Version None)
Quarter: 2007Q3

REPORT INFORMATION
  Report Type: 
  Country: None (occurrence: None)
  Receive Date: 20070726
  Receipt Date: 20070723
  Transmission Date: 20080115
  Serious: Yes (Hospitalization)
  Sender: FDA-Public Use
  Company Number: A0664573A

PATIENT
  Age: 69 Year
  Sex: Female

DRUGS (13)
  1. AVANDIA [Suspect]
     Dosage: 4MG TWICE PER DAY
     Route: 048
     Dates: start: 20010911, end: 20070501
  2. CARTIA XT [Concomitant]
  3. FUROSEMIDE INTENSOL [Concomitant]
  4. KLOR-CON [Concomitant]
  5. SYNTHROID [Concomitant]
  6. SULINDAC [Concomitant]
  7. LIPITOR [Concomitant]
  8. HYDROCHLOROTHIAZIDE [Concomitant]
  9. UNSPECIFIED MEDICATION [Concomitant]
  10. HYZAAR [Concomitant]
  11. CARDIZEM LA [Concomitant]
  12. DILTIAZEM [Concomitant]
  13. POTASSIUM CHLORIDE [Concomitant]

REACTIONS (5)
  - CARDIAC FAILURE CONGESTIVE [None]
  - CHRONIC OBSTRUCTIVE PULMONARY DISEASE [None]
  - COLD SWEAT [None]
  - MYOCARDIAL INFARCTION [None]
  - NAUSEA [None]
